FAERS Safety Report 8662018 (Version 2)
Quarter: 2012Q4

REPORT INFORMATION
  Report Type: 
  Country: BR (occurrence: BR)
  Receive Date: 20120712
  Receipt Date: 20121010
  Transmission Date: 20130627
  Serious: Yes (Hospitalization)
  Sender: FDA-Public Use
  Company Number: BR-GLAXOSMITHKLINE-A0984033A

PATIENT
  Age: 64 None
  Sex: Female
  Weight: 52 kg

DRUGS (11)
  1. VALTREX [Suspect]
     Indication: HERPES ZOSTER INFECTION NEUROLOGICAL
     Dosage: 500MG At night
     Route: 065
     Dates: start: 2002
  2. CALCIUM ACETATE\VITAMIN D [Suspect]
     Indication: PRODUCT USED FOR UNKNOWN INDICATION
     Dosage: 1TAB Per day
     Route: 065
     Dates: start: 2002
  3. VITAMIN B-COMPLEX [Suspect]
     Indication: PRODUCT USED FOR UNKNOWN INDICATION
     Dosage: 1TAB Per day
     Route: 065
     Dates: start: 2000
  4. LISADOR [Suspect]
     Indication: PAIN
     Dosage: 30DROP As required
     Route: 065
     Dates: start: 2002
  5. ASPIRIN [Concomitant]
  6. ATENOLOL [Concomitant]
  7. CLOPIDOGREL [Concomitant]
  8. CYMBALTA [Concomitant]
  9. FOLIC ACID [Concomitant]
  10. OMEPRAZOLE [Concomitant]
  11. CALCIUM CARBONATE [Concomitant]

REACTIONS (3)
  - Myocardial infarction [Recovered/Resolved]
  - Hypertension [Unknown]
  - Depression [Unknown]
